FAERS Safety Report 20893438 (Version 4)
Quarter: 2022Q3

REPORT INFORMATION
  Report Type: Spontaneous
  Country: CA (occurrence: CA)
  Receive Date: 20220531
  Receipt Date: 20220824
  Transmission Date: 20221027
  Serious: Yes (Other)
  Sender: FDA-Public Use
  Company Number: CA-CELLTRION INC.-2021CA000474

PATIENT

DRUGS (21)
  1. INFLECTRA [Suspect]
     Active Substance: INFLIXIMAB-DYYB
     Indication: Colitis ulcerative
     Dosage: 360 MG EVERY 6 WEEKS
     Route: 042
     Dates: start: 20200131
  2. INFLECTRA [Suspect]
     Active Substance: INFLIXIMAB-DYYB
     Dosage: 360 MG EVERY 6 WEEKS
     Route: 042
     Dates: start: 20210110
  3. INFLECTRA [Suspect]
     Active Substance: INFLIXIMAB-DYYB
     Dosage: 360 MG EVERY 6 WEEKS
     Route: 042
     Dates: start: 20210221, end: 20210221
  4. INFLECTRA [Suspect]
     Active Substance: INFLIXIMAB-DYYB
     Dosage: 360 MG EVERY 6 WEEKS
     Route: 042
     Dates: start: 20210404, end: 20210404
  5. INFLECTRA [Suspect]
     Active Substance: INFLIXIMAB-DYYB
     Dosage: 360 MG EVERY 6 WEEKS
     Route: 042
     Dates: start: 20210516, end: 20210516
  6. INFLECTRA [Suspect]
     Active Substance: INFLIXIMAB-DYYB
     Dosage: 360 MG EVERY 6 WEEKS
     Route: 042
     Dates: start: 20210627
  7. INFLECTRA [Suspect]
     Active Substance: INFLIXIMAB-DYYB
     Dosage: 360 MG EVERY 6 WEEKS
     Route: 042
     Dates: start: 20210815
  8. INFLECTRA [Suspect]
     Active Substance: INFLIXIMAB-DYYB
     Dosage: 360 MG EVERY 6 WEEKS
     Route: 042
     Dates: start: 20210926
  9. INFLECTRA [Suspect]
     Active Substance: INFLIXIMAB-DYYB
     Dosage: 360 MG EVERY 6 WEEKS
     Route: 042
     Dates: start: 20211114
  10. INFLECTRA [Suspect]
     Active Substance: INFLIXIMAB-DYYB
     Dosage: 360 MG EVERY 6 WEEKS
     Route: 042
     Dates: start: 20211226
  11. INFLECTRA [Suspect]
     Active Substance: INFLIXIMAB-DYYB
     Dosage: 400 MG EVERY 6 WEEKS
     Route: 042
     Dates: start: 20220221
  12. INFLECTRA [Suspect]
     Active Substance: INFLIXIMAB-DYYB
     Dosage: 400 MG,  EVERY 6 WEEKS
     Route: 042
     Dates: start: 20220403
  13. INFLECTRA [Suspect]
     Active Substance: INFLIXIMAB-DYYB
     Dosage: 400 MG,  EVERY 6 WEEKS
     Route: 042
     Dates: start: 20220515
  14. INFLECTRA [Suspect]
     Active Substance: INFLIXIMAB-DYYB
     Dosage: 400 MG, EVERY 6 WEEKS
     Route: 042
     Dates: start: 20220703
  15. INFLECTRA [Suspect]
     Active Substance: INFLIXIMAB-DYYB
     Dosage: 400 MG, EVERY 6 WEEKS
     Route: 042
     Dates: start: 20220813
  16. DEXEDRINE [Concomitant]
     Active Substance: DEXTROAMPHETAMINE SULFATE
     Dosage: UNK
  17. DEXEDRINE [Concomitant]
     Active Substance: DEXTROAMPHETAMINE SULFATE
     Dosage: 1 DF, DOSAGE NOT AVAILABLE
     Route: 065
  18. FOLIC ACID [Concomitant]
     Active Substance: FOLIC ACID
     Dosage: 1 DF (1 TABLET FIVE TIMES PER WEEK)
  19. FOLIC ACID [Concomitant]
     Active Substance: FOLIC ACID
     Dosage: 12500 UG, WEEKLY
     Route: 048
  20. FOLIC ACID [Concomitant]
     Active Substance: FOLIC ACID
     Dosage: 1 DF, DOSAGE NOT AVAILABLE
     Route: 065
  21. METHOTREXATE [Concomitant]
     Active Substance: METHOTREXATE
     Dosage: 12.5 MG PER WEEK
     Route: 048

REACTIONS (15)
  - Bradycardia [Not Recovered/Not Resolved]
  - Off label use [Unknown]
  - Off label use [Unknown]
  - Intentional product use issue [Unknown]
  - Blood pressure diastolic increased [Unknown]
  - Fatigue [Unknown]
  - Dry skin [Unknown]
  - Pruritus [Unknown]
  - Heart rate decreased [Not Recovered/Not Resolved]
  - Blood pressure fluctuation [Unknown]
  - Heart rate irregular [Unknown]
  - Body temperature decreased [Not Recovered/Not Resolved]
  - Weight decreased [Unknown]
  - Blood pressure increased [Unknown]
  - Suspected COVID-19 [Unknown]

NARRATIVE: CASE EVENT DATE: 20200131
